FAERS Safety Report 4298118-X (Version None)
Quarter: 2004Q1

REPORT INFORMATION
  Report Type: 
  Country: None (occurrence: None)
  Receive Date: 20040218
  Receipt Date: 20030123
  Transmission Date: 20041129
  Serious: Yes (Other)
  Sender: FDA-Public Use
  Company Number: US-BRISTOL-MYERS SQUIBB COMPANY-12165916

PATIENT
  Age: 36 Year
  Sex: Female
  Weight: 79 kg

DRUGS (4)
  1. STADOL [Suspect]
     Indication: DEMENTIA
     Dosage: 1 SPRAY EACH NOSTRIL Q8 HRS FOR LAST 4 YRS;USING 1 BOTTLE/WK;AT ONE POINT 1 BOTTLE Q3 DAYS
     Route: 045
  2. STADOL [Suspect]
     Indication: HEADACHE
     Dosage: 1 SPRAY EACH NOSTRIL Q8 HRS FOR LAST 4 YRS;USING 1 BOTTLE/WK;AT ONE POINT 1 BOTTLE Q3 DAYS
     Route: 045
  3. ZOLOFT [Concomitant]
  4. ATIVAN [Concomitant]

REACTIONS (1)
  - DEPENDENCE [None]
